FAERS Safety Report 4906035-4 (Version None)
Quarter: 2006Q1

REPORT INFORMATION
  Report Type: 
  Country: None (occurrence: None)
  Receive Date: 20060209
  Receipt Date: 20060131
  Transmission Date: 20060701
  Serious: Yes (Other)
  Sender: FDA-Public Use
  Company Number: GB-JNJFOC-20060200157

PATIENT
  Sex: Female
  Weight: 80 kg

DRUGS (10)
  1. REMICADE [Suspect]
     Indication: RHEUMATOID ARTHRITIS
     Route: 042
  2. METHOTREXATE [Concomitant]
     Route: 065
  3. CALCICHEW [Concomitant]
     Route: 065
  4. CO-CODAMOL [Concomitant]
     Route: 065
  5. CO-CODAMOL [Concomitant]
     Route: 065
  6. FOLIC ACID [Concomitant]
     Route: 065
  7. FOSAMAX [Concomitant]
     Route: 065
  8. MELOXICAM [Concomitant]
     Route: 065
  9. OMEPRAZOLE [Concomitant]
     Route: 065
  10. PARACETAMOL [Concomitant]
     Route: 065

REACTIONS (1)
  - BASAL CELL CARCINOMA [None]
